FAERS Safety Report 5121780-6 (Version None)
Quarter: 2006Q4

REPORT INFORMATION
  Report Type: 
  Country: None (occurrence: None)
  Receive Date: 20061006
  Receipt Date: 20060925
  Transmission Date: 20070319
  Serious: Yes (Hospitalization)
  Sender: FDA-Public Use
  Company Number: DE-ROCHE-464549

PATIENT
  Age: 59 Year
  Sex: Male

DRUGS (3)
  1. CAPECITABINE [Suspect]
     Indication: COLORECTAL CANCER
     Dosage: DAYS 1-14, REPETITION DAY 22 DOSE AND FREQUENCY AS PER PROTOCOL REPORTED DOSE  =  4000MG
     Route: 048
     Dates: start: 20060731, end: 20060922
  2. BEVACIZUMAB [Suspect]
     Indication: COLORECTAL CANCER
     Dosage: ON DAY 1 DOSE AND FREQUENCY AS PER PROTOCOL REPORTED DOSE = 515MG
     Route: 042
     Dates: start: 20060731, end: 20060922
  3. OXALIPLATIN [Suspect]
     Indication: COLORECTAL CANCER
     Dosage: ON DAY 1, REPETITION DAY 22 DOSE AND FREQUENCY AS PER PROTOCOL REPORTED DOSE  =  240MG
     Route: 042
     Dates: start: 20060731, end: 20060922

REACTIONS (2)
  - C-REACTIVE PROTEIN INCREASED [None]
  - FREQUENT BOWEL MOVEMENTS [None]
